FAERS Safety Report 9000241 (Version 1)
Quarter: 2013Q1

REPORT INFORMATION
  Report Type: Spontaneous
  Country: US (occurrence: US)
  Receive Date: 20130106
  Receipt Date: 20130106
  Transmission Date: 20140127
  Serious: No
  Sender: FDA-Public Use
  Company Number: US-ASTRAZENECA-2012SE96179

PATIENT
  Age: 59 Year
  Sex: Male

DRUGS (3)
  1. CAPRELSA [Suspect]
     Route: 048
     Dates: start: 20121113
  2. PRILOSEC [Suspect]
  3. ATENOLOL [Suspect]
     Route: 065

REACTIONS (2)
  - Diarrhoea [Unknown]
  - Arthralgia [Unknown]
